FAERS Safety Report 9300970 (Version 1)
Quarter: 2013Q2

REPORT INFORMATION
  Report Type: Spontaneous
  Country: US (occurrence: US)
  Receive Date: 20130521
  Receipt Date: 20130521
  Transmission Date: 20140414
  Serious: No
  Sender: FDA-Public Use
  Company Number: US-PFIZER INC-2013154197

PATIENT
  Age: 70 Year
  Sex: Female
  Weight: 74.83 kg

DRUGS (6)
  1. CELEBREX [Suspect]
     Indication: ARTHRITIS
     Dosage: 200 MG DAILY
     Dates: start: 20130515, end: 20130516
  2. CELEBREX [Suspect]
     Indication: INFLAMMATION
  3. METOPROLOL TARTRATE [Suspect]
     Indication: CHEST DISCOMFORT
     Dosage: 25 MG DAILY
  4. COENZYME Q10 [Suspect]
     Indication: CARDIAC DISORDER
     Dosage: 100 MG DAILY
  5. VITAMIN D [Suspect]
     Dosage: 1000 MG DAILY
  6. ARMOUR THYROID [Concomitant]
     Indication: THYROID DISORDER
     Dosage: 25MG DAILY

REACTIONS (2)
  - Erythema [Recovering/Resolving]
  - Feeling hot [Not Recovered/Not Resolved]
